FAERS Safety Report 12839361 (Version 3)
Quarter: 2020Q4

REPORT INFORMATION
  Report Type: Spontaneous
  Country: US (occurrence: US)
  Receive Date: 20161012
  Receipt Date: 20201223
  Transmission Date: 20210113
  Serious: No
  Sender: FDA-Public Use
  Company Number: US-PFIZER INC-2016472752

PATIENT
  Age: 58 Year
  Sex: Female

DRUGS (1)
  1. XELJANZ [Suspect]
     Active Substance: TOFACITINIB CITRATE
     Dosage: 5 MG, UNK

REACTIONS (15)
  - Depression [Unknown]
  - Headache [Unknown]
  - Alopecia [Unknown]
  - Pain [Unknown]
  - Sleep disorder [Unknown]
  - Swelling [Unknown]
  - Anxiety [Unknown]
  - Memory impairment [Unknown]
  - Abdominal pain upper [Unknown]
  - Muscular weakness [Unknown]
  - Fatigue [Unknown]
  - Constipation [Unknown]
  - Nausea [Unknown]
  - Hypoaesthesia [Unknown]
  - Fibromyalgia [Unknown]
